FAERS Safety Report 11025817 (Version 3)
Quarter: 2015Q4

REPORT INFORMATION
  Report Type: Report from Study
  Country: US (occurrence: US)
  Receive Date: 20150414
  Receipt Date: 20151030
  Transmission Date: 20160304
  Serious: Yes (Other)
  Sender: FDA-Public Use
  Company Number: US-SA-2013SA096264

PATIENT
  Age: 52 Year
  Sex: Female

DRUGS (3)
  1. CYMBALTA [Concomitant]
     Active Substance: DULOXETINE HYDROCHLORIDE
  2. BIOTIN [Concomitant]
     Active Substance: BIOTIN
  3. AUBAGIO [Suspect]
     Active Substance: TERIFLUNOMIDE
     Indication: MULTIPLE SCLEROSIS
     Dosage: TAKEN FROM :TWO WEEKS
     Route: 048
     Dates: start: 20130907

REACTIONS (19)
  - Urinary tract infection [Not Recovered/Not Resolved]
  - Abdominal discomfort [Unknown]
  - Stress [Unknown]
  - Fall [Unknown]
  - Diarrhoea [Not Recovered/Not Resolved]
  - Gastrointestinal disorder [Recovered/Resolved]
  - Alopecia [Recovering/Resolving]
  - Influenza [Unknown]
  - Skin discolouration [Unknown]
  - Fatigue [Unknown]
  - Abnormal dreams [Unknown]
  - White blood cell count decreased [Unknown]
  - Face injury [Unknown]
  - Upper limb fracture [Unknown]
  - Abdominal pain upper [Unknown]
  - Vaginal infection [Unknown]
  - Wound haemorrhage [Unknown]
  - Head injury [Unknown]
  - Paraesthesia [Unknown]

NARRATIVE: CASE EVENT DATE: 2013
